FAERS Safety Report 24180574 (Version 1)
Quarter: 2024Q3

REPORT INFORMATION
  Report Type: Spontaneous
  Country: US (occurrence: US)
  Receive Date: 20240806
  Receipt Date: 20240806
  Transmission Date: 20241017
  Serious: Yes (Other)
  Sender: AMGEN
  Company Number: US-AMGEN-USASP2024154815

PATIENT

DRUGS (3)
  1. PROLIA [Suspect]
     Active Substance: DENOSUMAB
     Indication: Osteoporosis postmenopausal
     Dosage: 60 MILLIGRAM, WEEKS 0 (DAY 1), 26, AND 52
     Route: 058
  2. CALCIUM [Concomitant]
     Active Substance: CALCIUM
     Dosage: LEAST 1,000 MG, QD
  3. VITAMIN D [Concomitant]
     Active Substance: VITAMIN D NOS
     Dosage: AT LEAST 400 IU, QD

REACTIONS (6)
  - Osteonecrosis of jaw [Unknown]
  - Injection site reaction [Unknown]
  - Skin disorder [Unknown]
  - Infection [Unknown]
  - Drug hypersensitivity [Unknown]
  - Hypocalcaemia [Unknown]
